FAERS Safety Report 7540832-4 (Version None)
Quarter: 2011Q2

REPORT INFORMATION
  Report Type: 
  Country: None (occurrence: None)
  Receive Date: 20110610
  Receipt Date: 20110601
  Transmission Date: 20111010
  Serious: Yes (Hospitalization, Other)
  Sender: FDA-Public Use
  Company Number: US-ASTRAZENECA-2011SE33777

PATIENT
  Age: 897 Month
  Sex: Male

DRUGS (6)
  1. ALBUTEROL SULFATE AUTOHALER [Concomitant]
  2. BP MEDS [Concomitant]
     Indication: HYPERTENSION
  3. DIABETES MEDS [Concomitant]
     Indication: DIABETES MELLITUS
  4. SEROQUEL [Suspect]
     Indication: MENTAL DISORDER
     Route: 048
     Dates: start: 20101201, end: 20110101
  5. SEROQUEL [Suspect]
     Indication: DEMENTIA
     Route: 048
     Dates: start: 20101201, end: 20110101
  6. HEART MEDS [Concomitant]
     Indication: CARDIAC DISORDER

REACTIONS (7)
  - SURGERY [None]
  - AGITATION [None]
  - OFF LABEL USE [None]
  - DRUG DOSE OMISSION [None]
  - PNEUMONIA [None]
  - KIDNEY INFECTION [None]
  - ANGER [None]
